FAERS Safety Report 17751975 (Version 1)
Quarter: 2020Q2

REPORT INFORMATION
  Report Type: Spontaneous
  Country: LU (occurrence: LU)
  Receive Date: 20200506
  Receipt Date: 20200506
  Transmission Date: 20200714
  Serious: Yes (Hospitalization)
  Sender: FDA-Public Use
  Company Number: NVSC2020LU122337

PATIENT
  Age: 33 Year
  Sex: Female
  Weight: 72 kg

DRUGS (6)
  1. PROPOFOL. [Suspect]
     Active Substance: PROPOFOL
     Indication: GENERAL ANAESTHESIA
     Dosage: 350 MG TOTAL
     Route: 042
     Dates: start: 20200121, end: 20200121
  2. FORTECORTIN [Suspect]
     Active Substance: DEXAMETHASONE
     Indication: ANAESTHETIC PREMEDICATION
     Dosage: 8 MG TOTAL
     Route: 042
     Dates: start: 20200121, end: 20200121
  3. SUFENTA [Suspect]
     Active Substance: SUFENTANIL CITRATE
     Indication: GENERAL ANAESTHESIA
     Dosage: 350 MG TOTAL
     Route: 042
     Dates: start: 20200121, end: 20200121
  4. AMOXICILLINE ACIDE CLAVULANIQUE SANDOZ [Suspect]
     Active Substance: AMOXICILLIN\CLAVULANATE POTASSIUM
     Indication: ANTIBIOTIC PROPHYLAXIS
     Dosage: 2 G TOTAL
     Route: 042
     Dates: start: 20200121, end: 20200121
  5. TARADYL [Suspect]
     Active Substance: KETOROLAC TROMETHAMINE
     Indication: PROCEDURAL PAIN
     Dosage: 30 MG TOTAL
     Route: 042
     Dates: start: 20200121, end: 20200121
  6. ESMERON [Suspect]
     Active Substance: ROCURONIUM BROMIDE
     Indication: GENERAL ANAESTHESIA
     Dosage: 30 MG TOTAL
     Route: 042
     Dates: start: 20200121, end: 20200121

REACTIONS (1)
  - Anaphylactic shock [Recovered/Resolved]

NARRATIVE: CASE EVENT DATE: 20200121
